FAERS Safety Report 4920217-7 (Version None)
Quarter: 2006Q1

REPORT INFORMATION
  Report Type: 
  Country: None (occurrence: None)
  Receive Date: 20060217
  Receipt Date: 20060209
  Transmission Date: 20060701
  Serious: Yes (Disabling)
  Sender: FDA-Public Use
  Company Number: GXKR2006CH00680

PATIENT
  Age: 65 Year
  Sex: Female

DRUGS (5)
  1. CIPROFLOXACIN (NGX)(CIPROFLOXACIN) FILM-COATED TABLET [Suspect]
     Indication: CYSTITIS
     Dosage: 500 MG,BID,ORAL
     Route: 048
     Dates: start: 20051023, end: 20051029
  2. ZYDERM(COLLAGEN,LIDOCAINE) [Suspect]
     Dosage: 5 TOTAL, SUBCUTANEOUS
     Route: 058
     Dates: start: 20041001, end: 20041001
  3. BRONCHO-VAXOM(DIPLOCOCCUS PNEUMONIAE TYP I, HAEMOPHILUS INFLUENZAE, KL [Suspect]
     Dosage: 7 MG,QD,ORAL
     Route: 048
     Dates: start: 20051007, end: 20051017
  4. ZOCOR [Concomitant]
  5. LIVIAL [Concomitant]

REACTIONS (4)
  - ANGIONEUROTIC OEDEMA [None]
  - COLLAGEN DISORDER [None]
  - CROSS SENSITIVITY REACTION [None]
  - HYPERSENSITIVITY [None]
